FAERS Safety Report 14163038 (Version 1)
Quarter: 2017Q4

REPORT INFORMATION
  Report Type: Spontaneous
  Country: AU (occurrence: AU)
  Receive Date: 20171106
  Receipt Date: 20171106
  Transmission Date: 20180321
  Serious: Yes (Other)
  Sender: FDA-Public Use
  Company Number: AU-BAUSCH-BL-2017-030663

PATIENT
  Sex: Female

DRUGS (1)
  1. PREDNISOLONE. [Suspect]
     Active Substance: PREDNISOLONE
     Indication: PRODUCT USED FOR UNKNOWN INDICATION
     Route: 065

REACTIONS (50)
  - Contusion [Unknown]
  - Pain [Unknown]
  - Sensitivity of teeth [Unknown]
  - Antinuclear antibody positive [Unknown]
  - Chest pain [Unknown]
  - Dyspnoea [Unknown]
  - Irritability [Unknown]
  - Headache [Unknown]
  - Alopecia [Unknown]
  - Cardiac disorder [Unknown]
  - Dizziness [Unknown]
  - Joint crepitation [Unknown]
  - Migraine [Unknown]
  - Nail disorder [Unknown]
  - Proctalgia [Unknown]
  - Tinnitus [Unknown]
  - Abdominal pain upper [Unknown]
  - Anxiety [Unknown]
  - Carbohydrate intolerance [Unknown]
  - Change of bowel habit [Unknown]
  - Chest discomfort [Unknown]
  - Decreased appetite [Unknown]
  - Dry eye [Unknown]
  - Insomnia [Unknown]
  - Lacrimation increased [Unknown]
  - Lethargy [Unknown]
  - Lipohypertrophy [Unknown]
  - Pruritus [Unknown]
  - Rash [Unknown]
  - Arthralgia [Unknown]
  - Vitreous floaters [Unknown]
  - Dry skin [Unknown]
  - Hair colour changes [Unknown]
  - Heart rate increased [Unknown]
  - Oedema [Unknown]
  - Skin atrophy [Unknown]
  - Weight decreased [Unknown]
  - Bone disorder [Unknown]
  - Ingrown hair [Unknown]
  - Malaise [Unknown]
  - Psychomotor hyperactivity [Unknown]
  - Brain injury [Unknown]
  - Cartilage injury [Unknown]
  - Eye disorder [Unknown]
  - Feeling abnormal [Unknown]
  - Memory impairment [Unknown]
  - Muscle spasms [Unknown]
  - Psoriasis [Unknown]
  - Vaginal haemorrhage [Unknown]
  - Vertigo [Unknown]
